FAERS Safety Report 4429404-8 (Version None)
Quarter: 2004Q3

REPORT INFORMATION
  Report Type: 
  Country: None (occurrence: None)
  Receive Date: 20040816
  Receipt Date: 20040803
  Transmission Date: 20050211
  Serious: Yes (Hospitalization)
  Sender: FDA-Public Use
  Company Number: 2004052149

PATIENT
  Age: 78 Year
  Sex: Male

DRUGS (4)
  1. ALFADIL (DOXAZOSIN) [Suspect]
     Indication: HYPERTENSION
     Dosage: ORAL
     Route: 048
     Dates: start: 19961001, end: 20030413
  2. METOPROLOL SUCCINATE [Concomitant]
  3. WARFARIN SODIUM [Concomitant]
  4. ALLOPURINOL [Concomitant]

REACTIONS (1)
  - MUSCLE SPASMS [None]
